FAERS Safety Report 4874884-7 (Version None)
Quarter: 2006Q1

REPORT INFORMATION
  Report Type: 
  Country: None (occurrence: None)
  Receive Date: 20060109
  Receipt Date: 20060102
  Transmission Date: 20060701
  Serious: Yes (Life-Threatening, Hospitalization)
  Sender: FDA-Public Use
  Company Number: TR-JNJFOC-20060100339

PATIENT
  Age: 30 Year
  Sex: Male

DRUGS (2)
  1. REMICADE [Suspect]
     Indication: CROHN'S DISEASE
     Dosage: (3MG/KG) 3 INFUSIONS AT WEEK 0,2 AND 6
     Route: 042
  2. IMURAN [Suspect]
     Indication: CROHN'S DISEASE
     Dosage: 2 MG/KG
     Route: 048

REACTIONS (1)
  - TUBERCULOSIS GASTROINTESTINAL [None]
